FAERS Safety Report 10144114 (Version 2)
Quarter: 2014Q3

REPORT INFORMATION
  Report Type: Report from Study
  Country: KR (occurrence: KR)
  Receive Date: 20140430
  Receipt Date: 20140711
  Transmission Date: 20150326
  Serious: Yes (Hospitalization)
  Sender: FDA-Public Use
  Company Number: KR-B.I. PHARMACEUTICALS,INC./RIDGEFIELD-2014-BI-18942YA

PATIENT
  Age: 70 Year
  Sex: Male
  Weight: 66 kg

DRUGS (3)
  1. HARNAL [Suspect]
     Active Substance: TAMSULOSIN HYDROCHLORIDE
     Indication: BENIGN PROSTATIC HYPERPLASIA
     Dosage: 0.2 MG
     Route: 048
     Dates: start: 20130430
  2. BLINDED FINASTERIDE [Suspect]
     Active Substance: FINASTERIDE
     Indication: BENIGN PROSTATIC HYPERPLASIA
     Dosage: FORMULATION: ORODISPERSIBLE TABLET
     Route: 048
     Dates: start: 20130430
  3. DEXAMETHASONE NA PHOSPHATE [Concomitant]
     Dosage: FORMULATION :INJECTION
     Route: 065
     Dates: start: 20140328, end: 20140328

REACTIONS (4)
  - Concomitant disease aggravated [None]
  - Bronchiolitis [None]
  - Bronchitis [Not Recovered/Not Resolved]
  - Erectile dysfunction [Not Recovered/Not Resolved]

NARRATIVE: CASE EVENT DATE: 201306
